FAERS Safety Report 18335497 (Version 2)
Quarter: 2020Q4

REPORT INFORMATION
  Report Type: Spontaneous
  Country: US (occurrence: US)
  Receive Date: 20201001
  Receipt Date: 20201020
  Transmission Date: 20210113
  Serious: No
  Sender: FDA-Public Use
  Company Number: US-VERTEX PHARMACEUTICALS-2020-019078

PATIENT
  Age: 14 Year
  Sex: Female

DRUGS (10)
  1. MONTELUKAST [Concomitant]
     Active Substance: MONTELUKAST SODIUM
  2. PULMOZYME [Concomitant]
     Active Substance: DORNASE ALFA
  3. HYPERSAL [Concomitant]
     Active Substance: SODIUM CHLORIDE
  4. FAMOTIDINE. [Concomitant]
     Active Substance: FAMOTIDINE
  5. ALBUTEROL [SALBUTAMOL] [Concomitant]
     Active Substance: ALBUTEROL
  6. BETHKIS [Concomitant]
     Active Substance: TOBRAMYCIN
  7. TRIKAFTA [Suspect]
     Active Substance: ELEXACAFTOR\IVACAFTOR\TEZACAFTOR
     Indication: CYSTIC FIBROSIS
     Dosage: 2 TABS (100MG ELEXACAFTOR/50MG TEZACAFTOR/75MG IVACAFTOR) AM AND 1 TAB 150MG IVACAFTOR) PM
     Route: 048
     Dates: start: 20191213
  8. CREON [Concomitant]
     Active Substance: PANCRELIPASE AMYLASE\PANCRELIPASE LIPASE\PANCRELIPASE PROTEASE
  9. ACTIGALL [Concomitant]
     Active Substance: URSODIOL
  10. LEVOCETIRIZINE [Concomitant]
     Active Substance: LEVOCETIRIZINE

REACTIONS (2)
  - Wound infection [Unknown]
  - Pulmonary function test abnormal [Unknown]

NARRATIVE: CASE EVENT DATE: 20200814
